FAERS Safety Report 11400571 (Version 2)
Quarter: 2015Q3

REPORT INFORMATION
  Report Type: Spontaneous
  Country: US (occurrence: None)
  Receive Date: 20150819
  Receipt Date: 20150826
  Transmission Date: 20151125
  Serious: Yes (Other)
  Sender: FDA-Public Use
  Company Number: US-TORRENT-00000986

PATIENT
  Age: 80 Year
  Sex: Female
  Weight: 64.41 kg

DRUGS (6)
  1. ZOLPIDEM TARTRATE. [Suspect]
     Active Substance: ZOLPIDEM TARTRATE
     Indication: INSOMNIA
     Dosage: SHE WAS PRESCRIBED ONE 10MG TABLET PER DAY.?SHE HAS TAKEN ONE FOURTH OF THE TABLET AND IF SHE WOKE UP AT NIGHT SHE WOULD TAKE THE OTHER ONE FOURTH OF THE TABLET.
  2. VITAMIN D [Concomitant]
     Active Substance: CHOLECALCIFEROL
  3. OXYCONTIN [Concomitant]
     Active Substance: OXYCODONE HYDROCHLORIDE
  4. LOW DOSE ASPIRIN [Concomitant]
     Active Substance: ASPIRIN
  5. AMLODIPINE [Concomitant]
     Active Substance: AMLODIPINE BESYLATE
  6. ZOLPIDEM TARTRATE. [Suspect]
     Active Substance: ZOLPIDEM TARTRATE
     Dosage: SHE WAS PRESCRIBED ONE 10MG TABLET PER DAY.?SHE HAS TAKEN ONE FOURTH OF THE TABLET AND IF SHE WOKE UP AT NIGHT SHE WOULD TAKE THE OTHER ONE FOURTH OF THE TABLET.

REACTIONS (3)
  - Incorrect dose administered [None]
  - Paralysis [None]
  - Underdose [None]
